FAERS Safety Report 5376143-5 (Version None)
Quarter: 2007Q2

REPORT INFORMATION
  Report Type: 
  Country: None (occurrence: None)
  Receive Date: 20070628
  Receipt Date: 20070628
  Transmission Date: 20071010
  Serious: Yes (Hospitalization)
  Sender: FDA-Public Use
  Company Number: None

PATIENT
  Sex: Male
  Weight: 71 kg

DRUGS (2)
  1. CISPLATIN [Suspect]
     Indication: TONSIL CANCER
     Dosage: 100MG/M2 IV Q3WKS
     Route: 042
     Dates: start: 20070529
  2. CETUXIMAB [Suspect]
     Dosage: 250MG/M2 IV QW
     Route: 042
     Dates: start: 20070611

REACTIONS (2)
  - PNEUMONIA [None]
  - PYREXIA [None]
